FAERS Safety Report 5880783-4 (Version None)
Quarter: 2008Q3

REPORT INFORMATION
  Report Type: 
  Country: None (occurrence: None)
  Receive Date: 20080912
  Receipt Date: 20080610
  Transmission Date: 20090109
  Serious: No
  Sender: FDA-Public Use
  Company Number: US-ABBOTT-08P-163-0456157-00

PATIENT
  Sex: Female
  Weight: 61.744 kg

DRUGS (1)
  1. HUMIRA [Suspect]
     Indication: PSORIASIS
     Route: 058
     Dates: start: 20080515

REACTIONS (3)
  - BRONCHITIS [None]
  - CHEST DISCOMFORT [None]
  - NASOPHARYNGITIS [None]
